FAERS Safety Report 10786561 (Version 1)
Quarter: 2015Q1

REPORT INFORMATION
  Report Type: Spontaneous
  Country: US (occurrence: None)
  Receive Date: 20150210
  Receipt Date: 20150210
  Transmission Date: 20150721
  Serious: No
  Sender: FDA-Public Use
  Company Number: None

PATIENT
  Age: 24 Year
  Sex: Female
  Weight: 68.04 kg

DRUGS (1)
  1. PARAGARD T 380A [Suspect]
     Active Substance: COPPER
     Dates: start: 20141008, end: 20150108

REACTIONS (3)
  - Pain in extremity [None]
  - Gait disturbance [None]
  - Dysmenorrhoea [None]

NARRATIVE: CASE EVENT DATE: 20141008
